FAERS Safety Report 13300044 (Version 1)
Quarter: 2017Q1

REPORT INFORMATION
  Report Type: Spontaneous
  Country: US (occurrence: US)
  Receive Date: 20170306
  Receipt Date: 20170306
  Transmission Date: 20170428
  Serious: Yes (Hospitalization, Other)
  Sender: FDA-Public Use
  Company Number: US-BAXTER-2017BAX004886

PATIENT
  Age: 83 Year
  Sex: Male
  Weight: 70.37 kg

DRUGS (1)
  1. DIANEAL LOW CALCIUM PERITONEAL DIALYSIS SOLUTION WITH DEXTROSE [Suspect]
     Active Substance: CALCIUM CHLORIDE\DEXTROSE\MAGNESIUM CHLORIDE\SODIUM CHLORIDE\SODIUM LACTATE
     Indication: PERITONEAL DIALYSIS
     Route: 033
     Dates: start: 20160815, end: 20170115

REACTIONS (3)
  - Abdominal hernia [Recovering/Resolving]
  - Disease complication [Unknown]
  - Local swelling [Unknown]

NARRATIVE: CASE EVENT DATE: 20170110
